FAERS Safety Report 23703004 (Version 1)
Quarter: 2024Q2

REPORT INFORMATION
  Report Type: Spontaneous
  Country: ES (occurrence: ES)
  Receive Date: 20240403
  Receipt Date: 20240403
  Transmission Date: 20240716
  Serious: Yes (Life-Threatening, Hospitalization)
  Sender: FDA-Public Use
  Company Number: ES-MYLANLABS-2024M1029913

PATIENT
  Age: 57 Year
  Sex: Male
  Weight: 85 kg

DRUGS (12)
  1. EPINEPHRINE [Suspect]
     Active Substance: EPINEPHRINE
     Indication: Distributive shock
     Dosage: 1 MICROGRAM/KILOGRAM, QMINUTE, INFUSION
     Route: 065
  2. EPINEPHRINE [Suspect]
     Active Substance: EPINEPHRINE
     Dosage: 0.17 MICROGRAM/KILOGRAM, QMINUTE, INFUSION
     Route: 042
  3. NOREPINEPHRINE [Suspect]
     Active Substance: NOREPINEPHRINE\NOREPINEPHRINE BITARTRATE
     Indication: Distributive shock
     Dosage: UNK
     Route: 042
  4. NOREPINEPHRINE [Suspect]
     Active Substance: NOREPINEPHRINE\NOREPINEPHRINE BITARTRATE
     Dosage: 3 MICROGRAM/KILOGRAM, QMINUTE, INFUSION(INCREASED DOSE UPTO 3??G/KG/MIN
     Route: 065
  5. VASOPRESSIN [Suspect]
     Active Substance: VASOPRESSIN
     Indication: Distributive shock
     Dosage: 0.03 INTERNATIONAL UNIT, QMINUTE, INFUSION
     Route: 065
  6. METHYLENE BLUE [Suspect]
     Active Substance: METHYLENE BLUE
     Indication: Distributive shock
     Dosage: 1 MILLIGRAM/KILOGRAM
     Route: 065
  7. TERLIPRESSIN [Suspect]
     Active Substance: TERLIPRESSIN
     Indication: Distributive shock
     Dosage: 1 MILLIGRAM
     Route: 065
  8. SILDENAFIL [Concomitant]
     Active Substance: SILDENAFIL
     Indication: Pulmonary arterial hypertension
     Dosage: 40 MILLIGRAM, Q8H
     Route: 065
  9. BOSENTAN [Concomitant]
     Active Substance: BOSENTAN
     Indication: Pulmonary arterial hypertension
     Dosage: 125 MILLIGRAM, BID
     Route: 065
  10. TREPROSTINIL [Concomitant]
     Active Substance: TREPROSTINIL
     Indication: Pulmonary arterial hypertension
     Dosage: UNK, INTRAVENOUS INFUSION 50 NG/KG/MIN
     Route: 042
  11. TREPROSTINIL [Concomitant]
     Active Substance: TREPROSTINIL
     Dosage: 200 MILLIGRAM, INTRAVENOUS INFUSION 200MG
     Route: 042
  12. TREPROSTINIL [Concomitant]
     Active Substance: TREPROSTINIL
     Dosage: UNK, INTRAVENOUS PERFUSION OF 2.38 NG/KG/MIN
     Route: 042

REACTIONS (1)
  - Drug ineffective [Unknown]
